FAERS Safety Report 6412449-6 (Version None)
Quarter: 2009Q4

REPORT INFORMATION
  Report Type: 
  Country: None (occurrence: None)
  Receive Date: 20091023
  Receipt Date: 20091016
  Transmission Date: 20100525
  Serious: Yes (Congenital Anomaly)
  Sender: FDA-Public Use
  Company Number: GB-MERCK-0910GBR00060

PATIENT

DRUGS (1)
  1. ISENTRESS [Suspect]
     Route: 064

REACTIONS (1)
  - EXOMPHALOS [None]
